FAERS Safety Report 10442623 (Version 1)
Quarter: 2014Q3

REPORT INFORMATION
  Report Type: Spontaneous
  Country: CN (occurrence: None)
  Receive Date: 20140908
  Receipt Date: 20140908
  Transmission Date: 20150326
  Serious: Yes (Other)
  Sender: FDA-Public Use
  Company Number: 7316384

PATIENT
  Age: 51 Year
  Sex: Female

DRUGS (2)
  1. INDAPAMIDE. [Concomitant]
     Active Substance: INDAPAMIDE
  2. EUTHROX [Suspect]
     Active Substance: LEVOTHYROXINE SODIUM
     Indication: HYPOTHYROIDISM
     Dosage: (1 DF, 1 IN 1 D) ORAL
     Route: 048
     Dates: start: 2004

REACTIONS (4)
  - Product quality issue [None]
  - Diabetes mellitus [None]
  - Discomfort [None]
  - Suffocation feeling [None]

NARRATIVE: CASE EVENT DATE: 2014
